FAERS Safety Report 4269849-2 (Version None)
Quarter: 2004Q1

REPORT INFORMATION
  Report Type: 
  Country: None (occurrence: None)
  Receive Date: 20040113
  Receipt Date: 20040113
  Transmission Date: 20041129
  Serious: Yes (Hospitalization)
  Sender: FDA-Public Use
  Company Number: None

PATIENT
  Age: 75 Year
  Sex: Male

DRUGS (9)
  1. TERAZOSIN HCL [Suspect]
     Indication: BENIGN PROSTATIC HYPERPLASIA
     Dosage: 10 MG QHS
     Dates: start: 19991101
  2. OMEPRAZOLE [Concomitant]
  3. ATENOLOL [Concomitant]
  4. CITALOPRAM [Concomitant]
  5. FOSINOPRIL SODIUM [Concomitant]
  6. RANITIDINE [Concomitant]
  7. LORATADINE [Concomitant]
  8. ISOSORBIDE [Concomitant]
  9. METOPROLOL [Concomitant]

REACTIONS (2)
  - BRADYCARDIA [None]
  - ORTHOSTATIC HYPOTENSION [None]
